FAERS Safety Report 15516784 (Version 5)
Quarter: 2019Q2

REPORT INFORMATION
  Report Type: Report from Study
  Country: JP (occurrence: JP)
  Receive Date: 20181017
  Receipt Date: 20190613
  Transmission Date: 20190711
  Serious: Yes (Disabling, Other)
  Sender: FDA-Public Use
  Company Number: JP-SA-2018SA278961

PATIENT
  Age: 47 Year
  Sex: Female
  Weight: 62 kg

DRUGS (10)
  1. PROTOPIC [Concomitant]
     Active Substance: TACROLIMUS
     Indication: DERMATITIS ATOPIC
     Dosage: SEVERAL TIMES A DAY G
     Route: 061
     Dates: start: 20180806
  2. DUPILUMAB [Suspect]
     Active Substance: DUPILUMAB
     Dosage: 300 MG, QOW
     Route: 058
     Dates: start: 20180820, end: 20180903
  3. DUPILUMAB [Suspect]
     Active Substance: DUPILUMAB
     Indication: DERMATITIS ATOPIC
     Dosage: 300 MG, QOW
     Route: 058
     Dates: start: 20181011
  4. HIRUDOID [Concomitant]
     Active Substance: GLYCOSAMINOGLYCANS
     Indication: DERMATITIS ATOPIC
     Dosage: SEVERAL TIMES A DAY G
     Route: 061
  5. AMLODIPINE [Suspect]
     Active Substance: AMLODIPINE BESYLATE
     Indication: HYPERTENSION
     Dosage: UNK
     Route: 065
     Dates: start: 20190516
  6. METHADERM [Concomitant]
     Indication: DERMATITIS ATOPIC
     Dosage: SEVERAL TIMES A DAY
     Route: 061
  7. OLOPATADINE HYDROCHLORIDE. [Concomitant]
     Active Substance: OLOPATADINE HYDROCHLORIDE
     Indication: DERMATITIS ATOPIC
     Dosage: 1 DF, BID
     Route: 048
     Dates: start: 20180802
  8. DUPILUMAB [Suspect]
     Active Substance: DUPILUMAB
     Dosage: 300 MG, QD
     Route: 058
     Dates: start: 20180921, end: 20180921
  9. DUPILUMAB [Suspect]
     Active Substance: DUPILUMAB
     Dosage: 600 MG, QD
     Route: 058
     Dates: start: 20180806, end: 20180806
  10. ANTEBATE [Concomitant]
     Active Substance: BETAMETHASONE DIPROPIONATE
     Indication: DERMATITIS ATOPIC
     Dosage: OPTIMAL DOSE, SEVERAL TIMES A DAY
     Route: 061
     Dates: start: 20180806

REACTIONS (4)
  - Conjunctivitis allergic [Recovering/Resolving]
  - Visual field defect [Not Recovered/Not Resolved]
  - Eye haemorrhage [Not Recovered/Not Resolved]
  - Retinal vein occlusion [Recovering/Resolving]

NARRATIVE: CASE EVENT DATE: 20180926
